FAERS Safety Report 7946804-X (Version None)
Quarter: 2011Q4

REPORT INFORMATION
  Report Type: 
  Country: None (occurrence: None)
  Receive Date: 20111129
  Receipt Date: 20111121
  Transmission Date: 20120403
  Serious: Yes (Hospitalization)
  Sender: FDA-Public Use
  Company Number: CA-ABBOTT-11P-028-0871749-00

PATIENT
  Sex: Female

DRUGS (1)
  1. HUMIRA [Suspect]
     Indication: COLITIS ULCERATIVE
     Route: 058
     Dates: start: 20100528

REACTIONS (8)
  - OROPHARYNGEAL PAIN [None]
  - RASH [None]
  - COUGH [None]
  - NASOPHARYNGITIS [None]
  - ADVERSE DRUG REACTION [None]
  - SKIN DISORDER [None]
  - RASH PAPULAR [None]
  - RASH MACULAR [None]
